FAERS Safety Report 22298293 (Version 4)
Quarter: 2024Q3

REPORT INFORMATION
  Report Type: Report from Study
  Country: EG (occurrence: EG)
  Receive Date: 20230509
  Receipt Date: 20240807
  Transmission Date: 20241016
  Serious: Yes (Other)
  Sender: NOVARTIS
  Company Number: EG-002147023-NVSC2023EG103441

PATIENT
  Age: 53 Year
  Sex: Female

DRUGS (7)
  1. KISQALI [Suspect]
     Active Substance: RIBOCICLIB
     Indication: Breast cancer
     Dosage: 3 DOSAGE FORM, QD (200 MG 3 TABLETS PER DAY)
     Route: 065
  2. KISQALI [Suspect]
     Active Substance: RIBOCICLIB
     Dosage: 2 DOSAGE FORM, QD (2 TABLETS PER DAY)
     Route: 065
  3. KISQALI [Suspect]
     Active Substance: RIBOCICLIB
     Dosage: UNK (2 TABLETS AT ONCE AND 1 TABLET PER DAY)
     Route: 065
  4. KISQALI [Suspect]
     Active Substance: RIBOCICLIB
     Dosage: 1 DOSAGE FORM (TABLET), QD (21 TABLET ONCE DAILY FOR 21 DAYS AND 1 WEEK OFF)
     Route: 065
  5. KISQALI [Suspect]
     Active Substance: RIBOCICLIB
     Dosage: 200MG AS ONE TABLET DAILY FOR 3 WEEKS AND ONE WEEK OFF
     Route: 065
  6. FEMARA [Suspect]
     Active Substance: LETROZOLE
     Indication: Breast cancer
     Dosage: 1 DOSAGE FORM (TABLET), QD (STARTED  ALMOST 2 YEARS OR 2 YEARS AND HALF AGO AS PER PATIENT)
     Route: 065
  7. JUSTECHOL [Concomitant]
     Indication: Blood cholesterol
     Dosage: 1 DOSAGE FORM, QD (1 TABLET ONCE DAILY)
     Route: 048

REACTIONS (11)
  - Diabetes mellitus [Not Recovered/Not Resolved]
  - Decreased immune responsiveness [Not Recovered/Not Resolved]
  - White blood cell count decreased [Not Recovered/Not Resolved]
  - Skin discolouration [Not Recovered/Not Resolved]
  - Autonomic nervous system imbalance [Recovering/Resolving]
  - Tachycardia [Recovering/Resolving]
  - Headache [Not Recovered/Not Resolved]
  - Hypersensitivity [Unknown]
  - Fatigue [Unknown]
  - Inappropriate schedule of product administration [Not Recovered/Not Resolved]
  - Off label use [Unknown]

NARRATIVE: CASE EVENT DATE: 20210901
